FAERS Safety Report 12718743 (Version 7)
Quarter: 2017Q2

REPORT INFORMATION
  Report Type: Spontaneous
  Country: BR (occurrence: BR)
  Receive Date: 20160906
  Receipt Date: 20170410
  Transmission Date: 20170830
  Serious: Yes (Hospitalization)
  Sender: FDA-Public Use
  Company Number: BR-BIOMARINAP-BR-2016-110930

PATIENT
  Sex: Male
  Weight: 24 kg

DRUGS (2)
  1. MACRODANTIN [Concomitant]
     Active Substance: NITROFURANTOIN
     Indication: PRODUCT USED FOR UNKNOWN INDICATION
     Dosage: UNK, QD
  2. VIMIZIM [Suspect]
     Active Substance: ELOSULFASE ALFA
     Indication: MUCOPOLYSACCHARIDOSIS IV
     Dosage: 50 MG, UNK
     Route: 042
     Dates: start: 20150303

REACTIONS (19)
  - Dyspnoea [Not Recovered/Not Resolved]
  - Renal pain [Not Recovered/Not Resolved]
  - Hypotension [Recovering/Resolving]
  - Urinary tract infection [Recovered/Resolved]
  - Renal injury [Recovering/Resolving]
  - White blood cells urine positive [Recovered/Resolved]
  - Pyrexia [Recovering/Resolving]
  - Urine output decreased [Recovering/Resolving]
  - Abdominal pain upper [Not Recovered/Not Resolved]
  - Tachycardia [Recovering/Resolving]
  - Abdominal distension [Recovering/Resolving]
  - Chills [Recovered/Resolved]
  - Weight decreased [Not Recovered/Not Resolved]
  - Urethral obstruction [Not Recovered/Not Resolved]
  - Headache [Recovering/Resolving]
  - Feeling hot [Recovered/Resolved]
  - Urinary retention [Not Recovered/Not Resolved]
  - Chromaturia [Recovered/Resolved]
  - Urethritis [Recovered/Resolved]
